FAERS Safety Report 10257840 (Version 2)
Quarter: 2014Q3

REPORT INFORMATION
  Report Type: Spontaneous
  Country: US (occurrence: US)
  Receive Date: 20140625
  Receipt Date: 20140917
  Transmission Date: 20150326
  Serious: No
  Sender: FDA-Public Use
  Company Number: US-009507513-1406USA009092

PATIENT
  Age: 82 Year
  Sex: Male

DRUGS (1)
  1. CLARITIN [Suspect]
     Active Substance: LORATADINE
     Indication: PRODUCT USED FOR UNKNOWN INDICATION
     Dosage: 10 MG, QD
     Route: 048
     Dates: start: 20140607

REACTIONS (3)
  - Dyspnoea [Recovered/Resolved]
  - Drug effect decreased [Unknown]
  - Nasal dryness [Recovered/Resolved]

NARRATIVE: CASE EVENT DATE: 20140607
